FAERS Safety Report 8575395 (Version 2)
Quarter: 2012Q4

REPORT INFORMATION
  Report Type: 
  Country: JP (occurrence: JP)
  Receive Date: 20120523
  Receipt Date: 20121130
  Transmission Date: 20130627
  Serious: Yes (Other)
  Sender: FDA-Public Use
  Company Number: JP-SANOFI-AVENTIS-2012SA035580

PATIENT
  Age: 13 Year
  Sex: Male

DRUGS (2)
  1. CEFOTAXIME [Suspect]
     Indication: ASPIRATION PNEUMONIA
     Route: 042
  2. ANTIBIOTICS [Suspect]
     Indication: BRONCHIAL SECRETION EXCESSIVE
     Route: 048

REACTIONS (8)
  - Hepatic failure [Recovering/Resolving]
  - Blood bilirubin increased [Recovering/Resolving]
  - Aspartate aminotransferase increased [Recovering/Resolving]
  - Alanine aminotransferase increased [Recovering/Resolving]
  - Gamma-glutamyltransferase increased [Recovering/Resolving]
  - Blood cholesterol increased [Recovering/Resolving]
  - Carnitine decreased [Unknown]
  - Hypoglycaemia [Unknown]
